FAERS Safety Report 16045507 (Version 2)
Quarter: 2019Q2

REPORT INFORMATION
  Report Type: Report from Study
  Country: GB (occurrence: GB)
  Receive Date: 20190307
  Receipt Date: 20190425
  Transmission Date: 20190711
  Serious: Yes (Other)
  Sender: FDA-Public Use
  Company Number: GB-TEVA-2019-GB-1019974

PATIENT
  Age: 52 Year
  Sex: Female

DRUGS (3)
  1. COPAXONE [Suspect]
     Active Substance: GLATIRAMER ACETATE
     Indication: MULTIPLE SCLEROSIS
     Route: 058
     Dates: start: 20181110, end: 201902
  2. PREGABALIN. [Concomitant]
     Active Substance: PREGABALIN
     Dosage: 300 MILLIGRAM DAILY;
  3. BETMIGA [Concomitant]
     Active Substance: MIRABEGRON

REACTIONS (13)
  - Post-traumatic stress disorder [Recovered/Resolved]
  - Fatigue [Recovered/Resolved]
  - Dizziness [Recovered/Resolved]
  - Anxiety [Recovered/Resolved]
  - Influenza like illness [Recovered/Resolved]
  - Shock [Recovered/Resolved]
  - Defaecation urgency [Recovered/Resolved]
  - Loss of consciousness [Recovered/Resolved]
  - Malaise [Recovered/Resolved]
  - Presyncope [Recovered/Resolved]
  - Dizziness [Recovered/Resolved]
  - Depressed mood [Recovered/Resolved]
  - Tremor [Recovered/Resolved]

NARRATIVE: CASE EVENT DATE: 201812
